FAERS Safety Report 5589528-9 (Version None)
Quarter: 2008Q1

REPORT INFORMATION
  Report Type: 
  Country: None (occurrence: None)
  Receive Date: 20080114
  Receipt Date: 20080102
  Transmission Date: 20080703
  Serious: Yes (Other)
  Sender: FDA-Public Use
  Company Number: US-AMGEN-US258802

PATIENT
  Sex: Female

DRUGS (2)
  1. ENBREL [Suspect]
     Indication: RHEUMATOID ARTHRITIS
     Route: 058
     Dates: start: 20071217
  2. METHOTREXATE [Concomitant]
     Route: 065

REACTIONS (5)
  - JOINT SWELLING [None]
  - PHARYNGOLARYNGEAL PAIN [None]
  - SINUSITIS [None]
  - THYROIDITIS [None]
  - WEIGHT FLUCTUATION [None]
